FAERS Safety Report 20609073 (Version 2)
Quarter: 2022Q1

REPORT INFORMATION
  Report Type: Report from Study
  Country: BR (occurrence: BR)
  Receive Date: 20220317
  Receipt Date: 20220331
  Transmission Date: 20220424
  Serious: Yes (Hospitalization)
  Sender: FDA-Public Use
  Company Number: BR-JNJFOC-20220334313

PATIENT
  Age: 76 Year
  Sex: Female
  Weight: 63 kg

DRUGS (14)
  1. AMIVANTAMAB [Suspect]
     Active Substance: AMIVANTAMAB
     Indication: Non-small cell lung cancer
     Route: 042
     Dates: start: 20220127, end: 20220224
  2. NIFEDIPINE [Concomitant]
     Active Substance: NIFEDIPINE
     Indication: Hypertension
     Route: 048
     Dates: start: 20000101
  3. HYDROCHLOROTHIAZIDE [Concomitant]
     Active Substance: HYDROCHLOROTHIAZIDE
     Indication: Hypertension
     Route: 048
     Dates: start: 20000101
  4. LOSARTAN [Concomitant]
     Active Substance: LOSARTAN
     Indication: Hypertension
     Route: 048
     Dates: start: 20000101, end: 20220224
  5. DONEPEZIL [Concomitant]
     Active Substance: DONEPEZIL
     Indication: Vascular dementia
     Route: 048
     Dates: start: 20210101
  6. CILOSTAZOL [Concomitant]
     Active Substance: CILOSTAZOL
     Indication: Vascular dementia
     Route: 048
     Dates: start: 20211201
  7. CLOPIDOGREL [Concomitant]
     Active Substance: CLOPIDOGREL BISULFATE
     Indication: Vascular dementia
     Route: 048
     Dates: start: 20211201
  8. GALANTAMINE [Concomitant]
     Active Substance: GALANTAMINE
     Indication: Vascular dementia
     Route: 048
     Dates: start: 20211201
  9. CITONEURIN [CYANOCOBALAMIN;PYRIDOXINE HYDROCHLORIDE;THIAMINE HYDROCHLO [Concomitant]
     Indication: Hypovitaminosis
     Dosage: DOSE:5000 UNITS: NOT REPORTED
     Route: 030
     Dates: start: 20211201
  10. QUETIPIN [Concomitant]
     Indication: Vascular dementia
     Route: 048
     Dates: start: 20211201, end: 20220224
  11. BROMOPRIDE [Concomitant]
     Active Substance: BROMOPRIDE
     Indication: Prophylaxis of nausea and vomiting
     Route: 048
     Dates: start: 20220127
  12. INDAPAMIDE [Concomitant]
     Active Substance: INDAPAMIDE
     Indication: Hypertension
     Route: 048
     Dates: start: 20220222
  13. LOSARTAN [Concomitant]
     Active Substance: LOSARTAN
     Indication: Hypertension
     Route: 048
     Dates: start: 20220225
  14. TRAZODONE HYDROCHLORIDE [Concomitant]
     Active Substance: TRAZODONE HYDROCHLORIDE
     Indication: Vascular dementia
     Route: 048
     Dates: start: 20220225

REACTIONS (1)
  - Embolism venous [Recovered/Resolved]

NARRATIVE: CASE EVENT DATE: 20220310
